FAERS Safety Report 9066584 (Version 1)
Quarter: 2013Q1

REPORT INFORMATION
  Report Type: Report from Study
  Country: US (occurrence: US)
  Receive Date: 20130131
  Receipt Date: 20130131
  Transmission Date: 20140127
  Serious: No
  Sender: FDA-Public Use
  Company Number: US-ABBOTT-12P-163-1016669-00

PATIENT
  Age: 27 Year
  Sex: Female

DRUGS (4)
  1. HUMIRA [Suspect]
     Indication: ANKYLOSING SPONDYLITIS
     Dates: start: 20121015
  2. NASONEX [Concomitant]
     Indication: NASAL POLYPS
     Dosage: 2 SQUIRTS EACH NOSTRIL ONCE DAILY
  3. ADVIL [Concomitant]
     Indication: PAIN
  4. ADVIL [Concomitant]
     Indication: SWELLING

REACTIONS (2)
  - Injection site urticaria [Recovered/Resolved]
  - Injection site pruritus [Recovered/Resolved]
